FAERS Safety Report 10567335 (Version 1)
Quarter: 2014Q4

REPORT INFORMATION
  Report Type: Spontaneous
  Country: US (occurrence: US)
  Receive Date: 20141106
  Receipt Date: 20141106
  Transmission Date: 20150529
  Serious: Yes (Other)
  Sender: FDA-Public Use
  Company Number: US-AMGEN-USASP2014084406

PATIENT
  Age: 82 Year
  Sex: Female

DRUGS (6)
  1. PROLIA [Suspect]
     Active Substance: DENOSUMAB
     Indication: OSTEOPOROSIS POSTMENOPAUSAL
     Dosage: UNK
     Route: 065
     Dates: start: 201406
  2. CALCIUM                            /00060701/ [Concomitant]
     Active Substance: CALCIUM
  3. B COMPLEX                          /00322001/ [Concomitant]
  4. MAGNESIUM                          /00082501/ [Concomitant]
     Dosage: UNK UNK, QD
  5. KRILL OIL [Concomitant]
     Active Substance: DIETARY SUPPLEMENT
  6. VITAMIN D                          /00107901/ [Concomitant]
     Active Substance: ERGOCALCIFEROL

REACTIONS (9)
  - Joint swelling [Recovering/Resolving]
  - Feeling hot [Recovering/Resolving]
  - Mobility decreased [Recovering/Resolving]
  - Musculoskeletal pain [Recovering/Resolving]
  - Palpitations [Unknown]
  - Rotator cuff syndrome [Unknown]
  - Erythema [Recovering/Resolving]
  - Skin discolouration [Recovering/Resolving]
  - Contusion [Recovering/Resolving]

NARRATIVE: CASE EVENT DATE: 20140703
